FAERS Safety Report 11046144 (Version 2)
Quarter: 2019Q1

REPORT INFORMATION
  Report Type: Spontaneous
  Country: TN (occurrence: TN)
  Receive Date: 20150418
  Receipt Date: 20190327
  Transmission Date: 20190417
  Serious: Yes (Life-Threatening, Hospitalization)
  Sender: FDA-Public Use
  Company Number: TN-ACCORD-030128

PATIENT
  Age: 67 Year
  Sex: Male

DRUGS (3)
  1. ALLOPURINOL. [Suspect]
     Active Substance: ALLOPURINOL
     Indication: HYPERURICAEMIA
  2. ACETYLSALICYLIC ACID [Concomitant]
     Active Substance: ASPIRIN
     Dosage: SINCE MANY YEARS
  3. CANDESARTAN. [Concomitant]
     Active Substance: CANDESARTAN
     Dosage: SINCE MANY YEARS

REACTIONS (1)
  - Acute generalised exanthematous pustulosis [Recovered/Resolved]
